FAERS Safety Report 4729437-8 (Version None)
Quarter: 2005Q3

REPORT INFORMATION
  Report Type: 
  Country: None (occurrence: None)
  Receive Date: 20050721
  Receipt Date: 20050411
  Transmission Date: 20060218
  Serious: No
  Sender: FDA-Public Use
  Company Number: 2005SP000139

PATIENT
  Age: 57 Year
  Sex: Female
  Weight: 61.2356 kg

DRUGS (4)
  1. LUNESTA [Suspect]
     Indication: INSOMNIA
     Dosage: 2 MG;HS;ORAL
     Route: 048
     Dates: start: 20050409
  2. ATORVASTATIN CALCIUM [Suspect]
     Dosage: 20 MG;QD;ORAL
     Route: 048
     Dates: end: 20050415
  3. AMBIEN [Concomitant]
  4. RESTORIL [Concomitant]

REACTIONS (7)
  - DRUG INEFFECTIVE [None]
  - DRUG INTERACTION [None]
  - DRY MOUTH [None]
  - HEART RATE INCREASED [None]
  - INSOMNIA [None]
  - NAUSEA [None]
  - STOMACH DISCOMFORT [None]
